FAERS Safety Report 19878015 (Version 3)
Quarter: 2022Q3

REPORT INFORMATION
  Report Type: Spontaneous
  Country: US (occurrence: US)
  Receive Date: 20210924
  Receipt Date: 20220706
  Transmission Date: 20221026
  Serious: Yes (Other)
  Sender: FDA-Public Use
  Company Number: US-BAYER-2021-213009

PATIENT
  Sex: Female

DRUGS (2)
  1. MIRENA [Suspect]
     Active Substance: LEVONORGESTREL
     Indication: Contraception
     Dosage: 20?G/DAY
     Route: 015
     Dates: start: 20170531
  2. WAKIX [Suspect]
     Active Substance: PITOLISANT HYDROCHLORIDE

REACTIONS (9)
  - Crohn^s disease [None]
  - Abdominal symptom [None]
  - Gastrointestinal disorder [None]
  - Ill-defined disorder [None]
  - Headache [None]
  - Tremor [None]
  - Abdominal pain [None]
  - Illness [Recovering/Resolving]
  - Weight increased [Recovering/Resolving]
